FAERS Safety Report 16659401 (Version 8)
Quarter: 2022Q3

REPORT INFORMATION
  Report Type: Report from Study
  Country: RU (occurrence: None)
  Receive Date: 20190802
  Receipt Date: 20220806
  Transmission Date: 20221026
  Serious: Yes (Death, Hospitalization)
  Sender: FDA-Public Use
  Company Number: RU-ROCHE-2366841

PATIENT
  Age: 65 Year
  Sex: Male
  Weight: 114 kg

DRUGS (27)
  1. ATEZOLIZUMAB [Suspect]
     Active Substance: ATEZOLIZUMAB
     Indication: Non-small cell lung cancer
     Dosage: ON DAY 1 OF EACH 21-DAY CYCLE (EVERY 3 WEEKS) ?MOST RECENT DOSE OF ATEZOLIZUMAB PRIOR TO SAE ONSET O
     Route: 041
     Dates: start: 20190403
  2. PACLITAXEL [Suspect]
     Active Substance: PACLITAXEL
     Indication: Non-small cell lung cancer
     Dosage: NAB-PACLITAXEL 100 MG/M^2 WILL BE ADMINISTERED INTRAVENOUSLY ON DAYS 1, 8, AND 15 OF EACH 21 DAY CYC
     Route: 042
     Dates: start: 20190403
  3. CARBOPLATIN [Suspect]
     Active Substance: CARBOPLATIN
     Indication: Non-small cell lung cancer
     Dosage: START DATE OF MOST RECENT DOSE OF STUDY DRUG PRIOR TO AE 04-JUN-2019??DOSE LAST STUDY DRUG ADMIN PRI
     Route: 042
     Dates: start: 20190403
  4. ELIQUIS [Concomitant]
     Active Substance: APIXABAN
     Indication: Atrial fibrillation
     Dates: start: 2013
  5. ROSUVASTATIN CALCIUM [Concomitant]
     Active Substance: ROSUVASTATIN CALCIUM
     Indication: Myocardial ischaemia
     Dates: start: 2016
  6. NEXIUM [Concomitant]
     Active Substance: ESOMEPRAZOLE MAGNESIUM
     Indication: Gastric ulcer
     Dates: start: 2017
  7. THYROSOL [Concomitant]
     Indication: Hyperthyroidism
     Dates: start: 20190604
  8. SOTALOL [Concomitant]
     Active Substance: SOTALOL
     Indication: Atrial fibrillation
     Dates: start: 20190618
  9. PREDNISOLONE [Concomitant]
     Active Substance: PREDNISOLONE
     Indication: Autoimmune eye disorder
     Route: 048
     Dates: start: 20190614
  10. PREDNISOLONE [Concomitant]
     Active Substance: PREDNISOLONE
     Route: 048
     Dates: start: 20190630, end: 20190630
  11. PREDNISOLONE [Concomitant]
     Active Substance: PREDNISOLONE
     Route: 048
     Dates: start: 20190701, end: 20190701
  12. PREDNISOLONE [Concomitant]
     Active Substance: PREDNISOLONE
     Route: 048
     Dates: start: 20190702, end: 20190702
  13. PREDNISOLONE [Concomitant]
     Active Substance: PREDNISOLONE
     Dosage: MEDICATION DOSE 95 TABLET
     Route: 048
     Dates: start: 20190703, end: 20190703
  14. PREDNISOLONE [Concomitant]
     Active Substance: PREDNISOLONE
     Route: 048
     Dates: start: 20190704, end: 20190704
  15. PREDNISOLONE [Concomitant]
     Active Substance: PREDNISOLONE
     Route: 048
     Dates: start: 20190705, end: 20190705
  16. PREDNISOLONE [Concomitant]
     Active Substance: PREDNISOLONE
     Route: 048
     Dates: start: 20190706, end: 20190706
  17. DEXAMETHASONE [Concomitant]
     Active Substance: DEXAMETHASONE
     Indication: Autoimmune eye disorder
     Route: 048
     Dates: start: 20190707, end: 20190715
  18. DEXAMETHASONE [Concomitant]
     Active Substance: DEXAMETHASONE
     Route: 048
     Dates: start: 20190710, end: 20190711
  19. DEXAMETHASONE [Concomitant]
     Active Substance: DEXAMETHASONE
     Route: 048
     Dates: start: 20190712, end: 20190713
  20. DEXAMETHASONE [Concomitant]
     Active Substance: DEXAMETHASONE
     Route: 048
     Dates: start: 20190714, end: 20190715
  21. DEXAMETHASONE [Concomitant]
     Active Substance: DEXAMETHASONE
     Route: 048
     Dates: start: 20190716
  22. BISOPROLOL FUMARATE [Concomitant]
     Active Substance: BISOPROLOL FUMARATE
     Indication: Hypertension
  23. ROSUVASTATIN CALCIUM [Concomitant]
     Active Substance: ROSUVASTATIN CALCIUM
  24. AMLODIPINE BESYLATE [Concomitant]
     Active Substance: AMLODIPINE BESYLATE
     Indication: Hypertension
  25. VAMLOSET [Concomitant]
     Indication: Hypertension
  26. INSPRA [Concomitant]
     Active Substance: EPLERENONE
  27. TORSEMIDE [Concomitant]
     Active Substance: TORSEMIDE

REACTIONS (1)
  - Cardiomyopathy [Fatal]

NARRATIVE: CASE EVENT DATE: 20190728
